FAERS Safety Report 4509390-2 (Version None)
Quarter: 2004Q4

REPORT INFORMATION
  Report Type: 
  Country: None (occurrence: None)
  Receive Date: 20041025
  Receipt Date: 20040625
  Transmission Date: 20050328
  Serious: Yes (Other)
  Sender: FDA-Public Use
  Company Number: US-JNJFOC-20040608082

PATIENT
  Age: 69 Year
  Sex: Female
  Weight: 79.3795 kg

DRUGS (11)
  1. INFLIXIMAB (INFLIXIMAB, RECOMBINANT) LYOPHILIZED POWDER [Suspect]
     Indication: RHEUMATOID ARTHRITIS
     Dosage: INTRAVENOUS
     Route: 042
     Dates: start: 20020715
  2. PREVACID [Concomitant]
  3. PREDNISONE [Concomitant]
  4. AMARYL [Concomitant]
  5. ZOCOR [Concomitant]
  6. METHOTREXATE [Concomitant]
  7. AVANDIA [Concomitant]
  8. FOLIC ACID [Concomitant]
  9. CALCIUM (CALCIUM) [Concomitant]
  10. TYLENOL [Concomitant]
  11. TYLENOL W/ CODEINE NO. 3 [Concomitant]

REACTIONS (1)
  - SINUSITIS [None]
